FAERS Safety Report 6475999-2 (Version None)
Quarter: 2009Q4

REPORT INFORMATION
  Report Type: 
  Country: None (occurrence: None)
  Receive Date: 20091119
  Receipt Date: 20090911
  Transmission Date: 20100525
  Serious: Yes (Hospitalization, Other)
  Sender: FDA-Public Use
  Company Number: 2009SP024821

PATIENT
  Sex: Female
  Weight: 45 kg

DRUGS (2)
  1. IMPLANON [Suspect]
     Indication: CONTRACEPTION
     Dosage: 1 DF ; 1 DF
     Dates: start: 20030101, end: 20060101
  2. IMPLANON [Suspect]
     Indication: CONTRACEPTION
     Dosage: 1 DF ; 1 DF
     Dates: start: 20081117, end: 20090911

REACTIONS (12)
  - ABASIA [None]
  - ABSCESS [None]
  - ACNE [None]
  - BACK PAIN [None]
  - BLOOD GLUCOSE FLUCTUATION [None]
  - BURNING SENSATION [None]
  - ELECTROLYTE IMBALANCE [None]
  - NEURALGIA [None]
  - PAIN [None]
  - SCAR [None]
  - SYMPHYSIOLYSIS [None]
  - VAGINAL HAEMORRHAGE [None]
